FAERS Safety Report 25551432 (Version 1)
Quarter: 2025Q3

REPORT INFORMATION
  Report Type: Spontaneous
  Country: EU (occurrence: EU)
  Receive Date: 20250714
  Receipt Date: 20250714
  Transmission Date: 20251020
  Serious: Yes (Hospitalization, Other)
  Sender: MYLAN
  Company Number: EU-GT-20251578

PATIENT
  Age: 14 Year
  Sex: Female

DRUGS (8)
  1. METHYLPHENIDATE [Suspect]
     Active Substance: METHYLPHENIDATE
     Indication: Attention deficit hyperactivity disorder
     Dosage: 54 MILLIGRAM, QD
  2. METHYLPHENIDATE [Suspect]
     Active Substance: METHYLPHENIDATE
     Indication: Impulsive behaviour
     Dosage: 54 MILLIGRAM, QD
     Route: 065
  3. METHYLPHENIDATE [Suspect]
     Active Substance: METHYLPHENIDATE
     Indication: Executive dysfunction
     Dosage: 54 MILLIGRAM, QD
     Route: 065
  4. METHYLPHENIDATE [Suspect]
     Active Substance: METHYLPHENIDATE
     Dosage: 54 MILLIGRAM, QD
  5. SERTRALINE [Concomitant]
     Active Substance: SERTRALINE HYDROCHLORIDE
     Indication: Irritability
     Dosage: 100 MILLIGRAM, QD
  6. SERTRALINE [Concomitant]
     Active Substance: SERTRALINE HYDROCHLORIDE
     Indication: Obsessive thoughts
     Dosage: 100 MILLIGRAM, QD
     Route: 065
  7. SERTRALINE [Concomitant]
     Active Substance: SERTRALINE HYDROCHLORIDE
     Indication: Affect lability
     Dosage: 100 MILLIGRAM, QD
     Route: 065
  8. SERTRALINE [Concomitant]
     Active Substance: SERTRALINE HYDROCHLORIDE
     Indication: Cognitive disorder
     Dosage: 100 MILLIGRAM, QD

REACTIONS (5)
  - Sensory overload [Recovering/Resolving]
  - Ideas of reference [Recovering/Resolving]
  - Psychomotor hyperactivity [Recovering/Resolving]
  - Sedation [Not Recovered/Not Resolved]
  - Insomnia [Recovering/Resolving]
